FAERS Safety Report 9276832 (Version 1)
Quarter: 2013Q2

REPORT INFORMATION
  Report Type: Spontaneous
  Country: US (occurrence: None)
  Receive Date: 20130501
  Receipt Date: 20130501
  Transmission Date: 20140414
  Serious: No
  Sender: FDA-Public Use
  Company Number: 2013US008300

PATIENT
  Sex: Female

DRUGS (3)
  1. ALOXI [Suspect]
     Indication: PROPHYLAXIS OF NAUSEA AND VOMITING
     Route: 042
     Dates: start: 20130417, end: 20130417
  2. DEXAMETHASONE (DEXAMETHASONE) [Concomitant]
  3. BENADRYL (DIPHENHYDRAMINE [Concomitant]

REACTIONS (2)
  - Heart rate increased [None]
  - Blood pressure decreased [None]
